FAERS Safety Report 14312494 (Version 4)
Quarter: 2018Q1

REPORT INFORMATION
  Report Type: Spontaneous
  Country: US (occurrence: US)
  Receive Date: 20171221
  Receipt Date: 20180322
  Transmission Date: 20180509
  Serious: No
  Sender: FDA-Public Use
  Company Number: US-PFIZER INC-2017541532

PATIENT
  Age: 74 Year
  Sex: Female
  Weight: 52 kg

DRUGS (3)
  1. ELETRIPTAN HBR [Suspect]
     Active Substance: ELETRIPTAN HYDROBROMIDE
     Indication: MIGRAINE
     Dosage: 40 MG, UNK (TWO TIMES A DAY AS NEEDED)
     Route: 048
     Dates: start: 201712
  2. RALOXIFENE. [Concomitant]
     Active Substance: RALOXIFENE
     Indication: OSTEOPOROSIS
     Dosage: 60 MG, 1X/DAY
     Route: 048
  3. RALOXIFENE. [Concomitant]
     Active Substance: RALOXIFENE
     Dosage: UNK
     Dates: start: 2012

REACTIONS (3)
  - Dyspepsia [Unknown]
  - Drug ineffective [Unknown]
  - Drug effect delayed [Unknown]

NARRATIVE: CASE EVENT DATE: 201712
